FAERS Safety Report 13247573 (Version 3)
Quarter: 2017Q1

REPORT INFORMATION
  Report Type: Spontaneous
  Country: US (occurrence: US)
  Receive Date: 20170217
  Receipt Date: 20170329
  Transmission Date: 20170428
  Serious: Yes (Life-Threatening, Hospitalization, Other)
  Sender: FDA-Public Use
  Company Number: US-SAOL THERAPEUTICS-2017SAO00316

PATIENT
  Sex: Male
  Weight: 77.98 kg

DRUGS (5)
  1. LIORESAL [Suspect]
     Active Substance: BACLOFEN
     Indication: MUSCLE SPASTICITY
     Dosage: UNK UNK, \DAY
  2. CLONIDINE. [Suspect]
     Active Substance: CLONIDINE
  3. NITRO BID PATCH [Suspect]
     Active Substance: NITROGLYCERIN
     Route: 048
  4. BACLOFEN. [Suspect]
     Active Substance: BACLOFEN
     Indication: MUSCLE SPASTICITY
     Dosage: 549.3 ?G, \DAY
     Route: 037
  5. ATIVAN [Suspect]
     Active Substance: LORAZEPAM
     Dosage: 2 MG, UNK

REACTIONS (8)
  - Therapy non-responder [Unknown]
  - Sudden onset of sleep [Recovered/Resolved]
  - Drug withdrawal syndrome [Not Recovered/Not Resolved]
  - Hypertension [Recovered/Resolved]
  - Complication associated with device [Unknown]
  - Muscle spasticity [Recovered/Resolved]
  - Abdominal discomfort [Unknown]
  - Device failure [Not Recovered/Not Resolved]

NARRATIVE: CASE EVENT DATE: 2015
